FAERS Safety Report 5181063-5 (Version None)
Quarter: 2006Q4

REPORT INFORMATION
  Report Type: 
  Country: None (occurrence: None)
  Receive Date: 20061213
  Receipt Date: 20061213
  Transmission Date: 20070319
  Serious: No
  Sender: FDA-Public Use
  Company Number: None

PATIENT
  Sex: Male
  Weight: 106.6 kg

DRUGS (3)
  1. DOXORUBICIN HYDROCHLORIDE [Suspect]
     Dosage: 114 MG
  2. GEMCITABINE HCL [Suspect]
     Dosage: 3616 MG
  3. VINBLASTINE SULFATE [Suspect]
     Dosage: 28 MG

REACTIONS (1)
  - NEUTROPENIA [None]
